FAERS Safety Report 4929167-3 (Version None)
Quarter: 2006Q1

REPORT INFORMATION
  Report Type: 
  Country: None (occurrence: None)
  Receive Date: 20060301
  Receipt Date: 20051215
  Transmission Date: 20060701
  Serious: Yes (Hospitalization, Other)
  Sender: FDA-Public Use
  Company Number: US-MERCK-0512USA02465

PATIENT
  Age: 53 Year
  Sex: Female

DRUGS (25)
  1. VIOXX [Suspect]
     Route: 048
  2. [THERAPY UNSPECIFIED] [Concomitant]
     Route: 065
  3. ADVAIR DISKUS 100/50 [Concomitant]
     Route: 065
  4. AMITRIPTYLINE HYDROCHLORIDE [Concomitant]
     Route: 048
  5. DARVOCET-N 50 [Concomitant]
     Route: 065
  6. NEURONTIN [Concomitant]
     Route: 065
  7. METOPROLOL [Concomitant]
     Route: 048
  8. ESTRADIOL [Concomitant]
     Route: 048
  9. ECOTRIN [Concomitant]
     Route: 048
  10. HUMALOG [Concomitant]
     Route: 058
  11. PAXIL [Concomitant]
     Route: 048
  12. LORTAB [Concomitant]
     Route: 065
  13. FLEXERIL [Concomitant]
     Route: 065
  14. ATIVAN [Concomitant]
     Route: 065
  15. PRINIVIL [Concomitant]
     Route: 048
  16. LASIX [Concomitant]
     Route: 065
  17. ZOCOR [Concomitant]
     Route: 065
  18. LOPRESSOR [Concomitant]
     Route: 065
  19. PEPCID [Concomitant]
     Route: 065
  20. DURAGESIC-100 [Concomitant]
     Route: 061
  21. CIPRO [Concomitant]
     Route: 042
  22. FLOXIN [Concomitant]
     Route: 042
  23. VANCOMYCIN [Concomitant]
     Route: 042
  24. DESYREL [Concomitant]
     Route: 048
  25. SPIRONOLACTONE [Concomitant]
     Route: 065

REACTIONS (24)
  - ANGINA UNSTABLE [None]
  - ANGIOPATHY [None]
  - CARDIAC ARREST [None]
  - CARDIAC FAILURE CONGESTIVE [None]
  - CAROTID ARTERY DISEASE [None]
  - CEREBROVASCULAR ACCIDENT [None]
  - CHRONIC OBSTRUCTIVE PULMONARY DISEASE [None]
  - CONVULSION [None]
  - CORONARY ARTERY DISEASE [None]
  - FALL [None]
  - FEMORAL ARTERY OCCLUSION [None]
  - GROIN INFECTION [None]
  - HYPOTENSION [None]
  - MENTAL STATUS CHANGES [None]
  - MYOCARDIAL INFARCTION [None]
  - NIGHT SWEATS [None]
  - PYREXIA [None]
  - RENAL FAILURE ACUTE [None]
  - SEPSIS [None]
  - SKIN ULCER [None]
  - THROMBOPHLEBITIS [None]
  - TRANSIENT ISCHAEMIC ATTACK [None]
  - VASCULAR GRAFT OCCLUSION [None]
  - WOUND [None]
